FAERS Safety Report 11860396 (Version 1)
Quarter: 2015Q4

REPORT INFORMATION
  Report Type: Spontaneous
  Country: US (occurrence: US)
  Receive Date: 20151222
  Receipt Date: 20151222
  Transmission Date: 20160305
  Serious: Yes (Other)
  Sender: FDA-Public Use
  Company Number: US-CELGENE-USA-2015122533

PATIENT
  Sex: Male
  Weight: 63.56 kg

DRUGS (7)
  1. THALOMID [Suspect]
     Active Substance: THALIDOMIDE
     Dosage: 2 MILLIGRAM/MILLILITERS
     Route: 048
     Dates: start: 201406
  2. THALOMID [Suspect]
     Active Substance: THALIDOMIDE
     Indication: ADENOMATOUS POLYPOSIS COLI
     Route: 048
     Dates: start: 201310, end: 2013
  3. THALOMID [Suspect]
     Active Substance: THALIDOMIDE
     Route: 048
     Dates: start: 201311
  4. THALOMID [Suspect]
     Active Substance: THALIDOMIDE
     Route: 048
     Dates: start: 20140716
  5. THALOMID [Suspect]
     Active Substance: THALIDOMIDE
     Route: 048
     Dates: start: 201512
  6. THALOMID [Suspect]
     Active Substance: THALIDOMIDE
     Dosage: 300-200MG
     Route: 048
     Dates: start: 201411
  7. ZOFRAN [Concomitant]
     Active Substance: ONDANSETRON HYDROCHLORIDE
     Indication: PRODUCT USED FOR UNKNOWN INDICATION
     Route: 065

REACTIONS (1)
  - Ankle fracture [Not Recovered/Not Resolved]
